FAERS Safety Report 6617838-2 (Version None)
Quarter: 2010Q1

REPORT INFORMATION
  Report Type: 
  Country: None (occurrence: None)
  Receive Date: 20100308
  Receipt Date: 20100302
  Transmission Date: 20100710
  Serious: Yes (Death)
  Sender: FDA-Public Use
  Company Number: US-ASTRAZENECA-2010SE05056

PATIENT
  Age: 40 Year
  Sex: Male

DRUGS (4)
  1. SEROQUEL [Suspect]
     Route: 048
  2. SEROQUEL [Suspect]
     Route: 048
  3. CELEXA [Concomitant]
     Indication: DEPRESSION
  4. METHADONE [Concomitant]
     Indication: DRUG DEPENDENCE
     Route: 048

REACTIONS (2)
  - CARDIAC ARREST [None]
  - HEPATIC FAILURE [None]
